FAERS Safety Report 19800682 (Version 1)
Quarter: 2021Q3

REPORT INFORMATION
  Report Type: Spontaneous
  Country: US (occurrence: US)
  Receive Date: 20210907
  Receipt Date: 20210907
  Transmission Date: 20211014
  Serious: Yes (Other)
  Sender: FDA-Public Use
  Company Number: US-SUNOVION-2021SUN003340

PATIENT
  Sex: Male
  Weight: 111 kg

DRUGS (32)
  1. ADVAIR HFA [Concomitant]
     Active Substance: FLUTICASONE PROPIONATE\SALMETEROL XINAFOATE
     Dosage: UNK, BID
     Route: 055
     Dates: start: 20200205
  2. ESCITALOPRAM [Concomitant]
     Active Substance: ESCITALOPRAM OXALATE
     Dosage: 20 MG, QD
     Route: 048
     Dates: start: 20210723
  3. TAMSULOSIN [Concomitant]
     Active Substance: TAMSULOSIN
     Dosage: 0.4 MG, BID
     Route: 048
     Dates: start: 20210621
  4. APTIOM [Suspect]
     Active Substance: ESLICARBAZEPINE ACETATE
     Dosage: 600 MG
     Route: 048
     Dates: start: 20210720
  5. APTIOM [Suspect]
     Active Substance: ESLICARBAZEPINE ACETATE
     Dosage: 1000 MG (1 800MG AND 200MG)
     Route: 048
     Dates: start: 20210723
  6. ATORVASTATIN [Concomitant]
     Active Substance: ATORVASTATIN
     Dosage: 20 MG, HS
     Route: 048
     Dates: start: 20210723
  7. CLOPIDOGREL [Concomitant]
     Active Substance: CLOPIDOGREL BISULFATE
     Dosage: 75 MG, QD
     Route: 048
     Dates: start: 20210723
  8. LEVOTHYROXINE. [Concomitant]
     Active Substance: LEVOTHYROXINE
     Dosage: 25 ?G, QD
     Route: 048
     Dates: start: 20210723
  9. METOPROLOL SUCCINATE. [Concomitant]
     Active Substance: METOPROLOL SUCCINATE
     Dosage: 25 MG, QD
     Route: 048
     Dates: start: 20210621
  10. QUETIAPINE. [Concomitant]
     Active Substance: QUETIAPINE
     Dosage: 50 MG, BID
     Route: 048
     Dates: start: 20210621
  11. ENALAPRIL MALEATE. [Concomitant]
     Active Substance: ENALAPRIL MALEATE
     Dosage: 20 MG
     Dates: start: 20180816
  12. LEVOTHYROXINE. [Concomitant]
     Active Substance: LEVOTHYROXINE
     Dosage: 25 ?G, QD
     Route: 048
     Dates: start: 20210621
  13. OMEPRAZOLE. [Concomitant]
     Active Substance: OMEPRAZOLE
     Dosage: 20 MG
     Dates: start: 20200520
  14. RISPERIDONE. [Concomitant]
     Active Substance: RISPERIDONE
     Dosage: 3 MG, QD
     Route: 048
     Dates: start: 20210723
  15. AMLODIPINE [Concomitant]
     Active Substance: AMLODIPINE BESYLATE
     Dosage: 5 MG, QD
     Route: 048
     Dates: start: 20210723
  16. ESCITALOPRAM [Concomitant]
     Active Substance: ESCITALOPRAM OXALATE
     Dosage: 10 MG
     Dates: start: 20201007
  17. SEROQUEL [Concomitant]
     Active Substance: QUETIAPINE FUMARATE
     Dosage: 100 MG, HS
  18. APTIOM [Suspect]
     Active Substance: ESLICARBAZEPINE ACETATE
     Dosage: 400 MG
     Route: 048
     Dates: start: 20210204
  19. AMLODIPINE [Concomitant]
     Active Substance: AMLODIPINE BESYLATE
     Dosage: 5 MG, QD
     Route: 048
     Dates: start: 20210621
  20. LORAZEPAM. [Concomitant]
     Active Substance: LORAZEPAM
     Dosage: 0.5 MG
     Route: 048
     Dates: start: 20191003
  21. TAMSULOSIN [Concomitant]
     Active Substance: TAMSULOSIN
     Dosage: 0.4 MG, BID
     Route: 048
     Dates: start: 20210725
  22. ASPIRIN. [Concomitant]
     Active Substance: ASPIRIN
     Dosage: 81 MG, QD
     Route: 048
     Dates: start: 20170907
  23. CLOPIDOGREL [Concomitant]
     Active Substance: CLOPIDOGREL BISULFATE
     Dosage: 75 MG, QD
     Route: 048
     Dates: start: 20210621
  24. ESCITALOPRAM [Concomitant]
     Active Substance: ESCITALOPRAM OXALATE
     Dosage: 20 MG, QD
     Route: 048
     Dates: start: 20210621
  25. FAMOTIDINE. [Concomitant]
     Active Substance: FAMOTIDINE
     Dosage: 20 MG, QD
     Route: 048
     Dates: start: 20180816
  26. INVEGA SUSTENNA [Concomitant]
     Active Substance: PALIPERIDONE PALMITATE
     Dosage: UNK
     Route: 030
     Dates: start: 20201208
  27. QUETIAPINE. [Concomitant]
     Active Substance: QUETIAPINE
     Dosage: 50 MG, BID
     Route: 048
     Dates: start: 20210723
  28. RAMIPRIL. [Concomitant]
     Active Substance: RAMIPRIL
     Dosage: 10 MG, QD
     Route: 048
     Dates: start: 20210621
  29. RISPERIDONE. [Concomitant]
     Active Substance: RISPERIDONE
     Dosage: 3 MG, QD
     Route: 048
     Dates: start: 20210621
  30. ATORVASTATIN [Concomitant]
     Active Substance: ATORVASTATIN
     Dosage: 20 MG, HS
     Route: 048
     Dates: start: 20210621
  31. METOPROLOL SUCCINATE. [Concomitant]
     Active Substance: METOPROLOL SUCCINATE
     Dosage: 25 MG, QD
     Route: 048
     Dates: start: 20210723
  32. RANITIDINE. [Concomitant]
     Active Substance: RANITIDINE
     Dosage: 150 MG, BID
     Route: 048
     Dates: start: 20200306

REACTIONS (4)
  - Sleep disorder [Unknown]
  - Seizure [Unknown]
  - Urinary incontinence [Unknown]
  - Parosmia [Unknown]
